FAERS Safety Report 4555577-2 (Version None)
Quarter: 2005Q1

REPORT INFORMATION
  Report Type: 
  Country: None (occurrence: None)
  Receive Date: 20050118
  Receipt Date: 20050118
  Transmission Date: 20050727
  Serious: Yes (Hospitalization)
  Sender: FDA-Public Use
  Company Number: None

PATIENT
  Age: 85 Year
  Sex: Female
  Weight: 94.3482 kg

DRUGS (10)
  1. WARFARIN SODIUM [Suspect]
     Indication: ATRIAL FIBRILLATION
     Dosage: 2 TO 5 MG
     Dates: start: 20041025, end: 20041107
  2. TOPROL-XL [Concomitant]
  3. AMBIEN [Concomitant]
  4. ZOLOFT [Concomitant]
  5. LEVOTHYROXINE [Concomitant]
  6. PROTONIX [Concomitant]
  7. HALDOL [Concomitant]
  8. CARDIZEM CD [Concomitant]
  9. CELEBREX [Concomitant]
  10. RYTHMOL SR [Concomitant]

REACTIONS (1)
  - SKIN NECROSIS [None]
